FAERS Safety Report 20529554 (Version 4)
Quarter: 2022Q2

REPORT INFORMATION
  Report Type: Spontaneous
  Country: US (occurrence: US)
  Receive Date: 20220301
  Receipt Date: 20220413
  Transmission Date: 20220721
  Serious: Yes (Hospitalization)
  Sender: FDA-Public Use
  Company Number: US-GLAXOSMITHKLINE-US2022AMR035683

PATIENT
  Sex: Female
  Weight: 88.45 kg

DRUGS (5)
  1. NUCALA [Suspect]
     Active Substance: MEPOLIZUMAB
     Indication: Asthma
     Dosage: UNK
  2. DUPIXENT [Suspect]
     Active Substance: DUPILUMAB
     Indication: Asthma
     Dosage: 150 MG/ML
     Dates: start: 202112
  3. DUPIXENT [Suspect]
     Active Substance: DUPILUMAB
     Dosage: 600 MG, Z
  4. DUPIXENT [Suspect]
     Active Substance: DUPILUMAB
     Dosage: 300 MG, Z
  5. FASENRA [Suspect]
     Active Substance: BENRALIZUMAB
     Indication: Product used for unknown indication
     Dosage: UNK

REACTIONS (9)
  - Hospitalisation [Unknown]
  - Local reaction [Recovered/Resolved]
  - Oxygen saturation decreased [Unknown]
  - Asthma [Unknown]
  - Drug hypersensitivity [Unknown]
  - Psoriasis [Recovered/Resolved]
  - Urticaria [Recovered/Resolved]
  - Product dose omission issue [Unknown]
  - Product use issue [Unknown]
